FAERS Safety Report 10032973 (Version 1)
Quarter: 2014Q1

REPORT INFORMATION
  Report Type: Spontaneous
  Country: DE (occurrence: DE)
  Receive Date: 20140324
  Receipt Date: 20140324
  Transmission Date: 20141002
  Serious: Yes (Hospitalization)
  Sender: FDA-Public Use
  Company Number: DE-B.I. PHARMACEUTICALS,INC./RIDGEFIELD-2014-BI-12370DE

PATIENT
  Age: 82 Year
  Sex: Female
  Weight: 71 kg

DRUGS (3)
  1. PRADAXA [Suspect]
     Indication: ATRIAL FIBRILLATION
     Dosage: 220 MG
     Route: 065
     Dates: start: 201306, end: 20140112
  2. PRADAXA [Suspect]
     Dosage: 220 MG
     Route: 065
     Dates: start: 20140318
  3. XANEF [Concomitant]
     Route: 065

REACTIONS (3)
  - Intestinal operation [Unknown]
  - Intestinal haemorrhage [Unknown]
  - Epistaxis [Unknown]
